FAERS Safety Report 22170616 (Version 2)
Quarter: 2023Q2

REPORT INFORMATION
  Report Type: Spontaneous
  Country: US (occurrence: None)
  Receive Date: 20230404
  Receipt Date: 20230425
  Transmission Date: 20230721
  Serious: No
  Sender: FDA-Public Use
  Company Number: 2023A064741

PATIENT
  Age: 86 Year
  Sex: Female

DRUGS (1)
  1. PULMICORT FLEXHALER [Suspect]
     Active Substance: BUDESONIDE
     Indication: Bronchiectasis
     Dosage: 90MCG, 60 ACTUATION INHALER AS ONE PUFF TWICE A DAY
     Route: 055
     Dates: start: 20230330

REACTIONS (5)
  - Respiratory tract infection viral [Recovering/Resolving]
  - Product use in unapproved indication [Unknown]
  - Device use issue [Recovered/Resolved]
  - Drug dose omission by device [Unknown]
  - Device malfunction [Recovering/Resolving]

NARRATIVE: CASE EVENT DATE: 20230101
